FAERS Safety Report 4482291-4 (Version None)
Quarter: 2004Q4

REPORT INFORMATION
  Report Type: 
  Country: None (occurrence: None)
  Receive Date: 20041020
  Receipt Date: 20041005
  Transmission Date: 20050328
  Serious: Yes (Hospitalization)
  Sender: FDA-Public Use
  Company Number: 2004AP04321

PATIENT
  Age: 68 Year
  Sex: Male

DRUGS (13)
  1. IRESSA [Suspect]
     Indication: NON-SMALL CELL LUNG CANCER
     Dosage: 250 MG DAILY PO
     Route: 048
     Dates: start: 20040609, end: 20040810
  2. IRESSA [Suspect]
     Indication: SQUAMOUS CELL CARCINOMA
     Dosage: 250 MG DAILY PO
     Route: 048
     Dates: start: 20040609, end: 20040810
  3. LOXONIN [Concomitant]
  4. SELBEX [Concomitant]
  5. CYANOCOBALAMIN [Concomitant]
  6. CARBOPLATIN [Concomitant]
  7. PACLITAXEL [Concomitant]
  8. MYSLEE [Concomitant]
  9. BIOLACTIS [Concomitant]
  10. MUCOSOLVAN [Concomitant]
  11. NIZORAL [Concomitant]
  12. TENORMIN [Concomitant]
  13. LOPEMIN [Concomitant]

REACTIONS (8)
  - CYSTITIS [None]
  - DIARRHOEA [None]
  - DRUG INEFFECTIVE [None]
  - HAEMATURIA [None]
  - RASH [None]
  - RENAL HAEMORRHAGE [None]
  - THROMBOSIS [None]
  - UROGRAPHY ABNORMAL [None]
